FAERS Safety Report 11445743 (Version 1)
Quarter: 2015Q3

REPORT INFORMATION
  Report Type: Spontaneous
  Country: AU (occurrence: AU)
  Receive Date: 20150902
  Receipt Date: 20150902
  Transmission Date: 20151125
  Serious: Yes (Other)
  Sender: FDA-Public Use
  Company Number: AU-PFIZER INC-2015288754

PATIENT
  Age: 63 Year
  Sex: Male
  Weight: 88 kg

DRUGS (1)
  1. SINEQUAN [Suspect]
     Active Substance: DOXEPIN HYDROCHLORIDE

REACTIONS (1)
  - Depression suicidal [Unknown]
